FAERS Safety Report 9663719 (Version 1)
Quarter: 2013Q4

REPORT INFORMATION
  Report Type: Spontaneous
  Country: US (occurrence: None)
  Receive Date: 20131030
  Receipt Date: 20131030
  Transmission Date: 20140711
  Serious: Yes (Disabling, Other)
  Sender: FDA-Public Use
  Company Number: None

PATIENT
  Age: 50 Year
  Sex: Male
  Weight: 65.77 kg

DRUGS (1)
  1. CIPROFLOXACIN [Suspect]
     Indication: PROSTATITIS
     Dosage: 1 PILL TWICE DAILY TAKEN BY MOUTH
     Dates: start: 20131019, end: 20131026

REACTIONS (7)
  - Eye irritation [None]
  - Nervous system disorder [None]
  - Pain in extremity [None]
  - Musculoskeletal pain [None]
  - Arthralgia [None]
  - Eye disorder [None]
  - Arthropathy [None]
